FAERS Safety Report 10215557 (Version 2)
Quarter: 2014Q3

REPORT INFORMATION
  Report Type: Spontaneous
  Country: IT (occurrence: IT)
  Receive Date: 20140604
  Receipt Date: 20140707
  Transmission Date: 20150326
  Serious: Yes (Other)
  Sender: FDA-Public Use
  Company Number: IT-ACCORD-024029

PATIENT
  Age: 71 Year

DRUGS (2)
  1. GEMCITABINE [Suspect]
     Active Substance: GEMCITABINE\GEMCITABINE HYDROCHLORIDE
     Indication: BLADDER CANCER
     Dosage: GEMCITABINA ACCORD - ^100 MG/ML CONCENTRATE FOR SOLUTION FOR INFUSION^ 1 GLASS AMPOULE 10 ML
     Route: 042
     Dates: start: 20140318
  2. CISPLATINO HOSPIRA [Suspect]
     Active Substance: CISPLATIN
     Indication: BLADDER CANCER
     Dosage: CISPLATINO HOSPIRA - ^50 MG/50 ML SOLUTION FOR INFUSION^ 1 AMPOULE 50 ML (HOSPIRA ITALIA S.R.L.)
     Route: 042
     Dates: start: 20140318

REACTIONS (3)
  - Leukopenia [Recovering/Resolving]
  - Neutropenia [Recovering/Resolving]
  - Thrombocytopenia [Recovering/Resolving]

NARRATIVE: CASE EVENT DATE: 20140403
